FAERS Safety Report 4634197-5 (Version None)
Quarter: 2005Q2

REPORT INFORMATION
  Report Type: 
  Country: None (occurrence: None)
  Receive Date: 20050325
  Receipt Date: 20041230
  Transmission Date: 20051028
  Serious: No
  Sender: FDA-Public Use
  Company Number: USA050187232

PATIENT
  Age: 60 Year
  Sex: Female

DRUGS (5)
  1. FORTEO [Suspect]
     Indication: WRIST FRACTURE
     Dates: start: 20040101
  2. FOSAMAX [Concomitant]
  3. ACTONEL [Concomitant]
  4. MIACALCIN [Concomitant]
  5. LAMICTAL [Concomitant]

REACTIONS (2)
  - DYSPNOEA EXERTIONAL [None]
  - MUSCULAR WEAKNESS [None]
